FAERS Safety Report 7978097-1 (Version None)
Quarter: 2011Q4

REPORT INFORMATION
  Report Type: 
  Country: None (occurrence: None)
  Receive Date: 20111212
  Receipt Date: 20111212
  Transmission Date: 20120403
  Serious: Yes (Hospitalization)
  Sender: FDA-Public Use
  Company Number: None

PATIENT
  Sex: Female
  Weight: 115.2136 kg

DRUGS (2)
  1. PEGASYS [Suspect]
     Indication: HEPATITIS C
     Dosage: PEGASYS 180MCG SQ
     Route: 058
     Dates: start: 20111117
  2. RIBAVIRIN [Suspect]
     Indication: HEPATITIS C
     Dosage: 200MG (4 TABS)AND 3 TABS 4 IN AM AND 3 IN P PO
     Route: 048
     Dates: start: 20111117

REACTIONS (5)
  - DIZZINESS [None]
  - DEHYDRATION [None]
  - VERTIGO [None]
  - DYSPNOEA [None]
  - HEARING IMPAIRED [None]
